FAERS Safety Report 8773034 (Version 1)
Quarter: 2012Q4

REPORT INFORMATION
  Report Type: Report from Study
  Country: CA (occurrence: CA)
  Receive Date: 20120907
  Receipt Date: 20120907
  Transmission Date: 20130627
  Serious: Yes (Other)
  Sender: FDA-Public Use
  Company Number: CA-JNJFOC-20120815131

PATIENT
  Age: 55 Year
  Sex: Female
  Weight: 74 kg

DRUGS (4)
  1. REMICADE [Suspect]
     Indication: HIDRADENITIS
     Route: 042
     Dates: start: 20120216
  2. CRESTOR [Concomitant]
     Route: 065
  3. SORIATANE [Concomitant]
     Route: 065
  4. METHOTREXATE [Concomitant]
     Route: 065

REACTIONS (1)
  - Wound [Unknown]
